FAERS Safety Report 9836151 (Version 3)
Quarter: 2014Q1

REPORT INFORMATION
  Report Type: Spontaneous
  Country: US (occurrence: US)
  Receive Date: 20140123
  Receipt Date: 20140227
  Transmission Date: 20141002
  Serious: No
  Sender: FDA-Public Use
  Company Number: US-009507513-1401USA008027

PATIENT
  Sex: Female

DRUGS (5)
  1. DULERA [Suspect]
     Indication: ASTHMA
     Dosage: 2 DF, BID,2 PUFFS TWICE DAILY
     Route: 055
  2. DULERA [Suspect]
     Dosage: 1 DF, BID, 1 PUFF TWICE DAILY SOMETIMES
     Route: 055
  3. VENTOLIN (ALBUTEROL SULFATE) [Concomitant]
     Dosage: UNK
  4. LISINOPRIL [Concomitant]
     Dosage: UNK
     Route: 048
  5. AMBIEN [Concomitant]
     Dosage: UNK

REACTIONS (2)
  - Intentional underdose [Unknown]
  - No adverse event [Unknown]
